FAERS Safety Report 10223968 (Version 1)
Quarter: 2014Q2

REPORT INFORMATION
  Report Type: Spontaneous
  Country: CN (occurrence: CN)
  Receive Date: 20140609
  Receipt Date: 20140609
  Transmission Date: 20141212
  Serious: Yes (Other)
  Sender: FDA-Public Use
  Company Number: CN-ROCHE-1410720

PATIENT
  Age: 15 Day
  Sex: Male
  Weight: 3.35 kg

DRUGS (2)
  1. ROCEPHIN [Suspect]
     Indication: INFECTION
     Dosage: AT A SPEED OF 10 ML/H
     Route: 041
     Dates: start: 20130807, end: 20130813
  2. SODIUM CHLORIDE [Concomitant]
     Dosage: 10 ML/HR
     Route: 065

REACTIONS (2)
  - Penis disorder [Recovering/Resolving]
  - Rash [Recovering/Resolving]
